FAERS Safety Report 11163602 (Version 1)
Quarter: 2015Q2

REPORT INFORMATION
  Report Type: Spontaneous
  Country: US (occurrence: None)
  Receive Date: 20150603
  Receipt Date: 20150603
  Transmission Date: 20150821
  Serious: Yes (Disabling)
  Sender: FDA-Public Use
  Company Number: None

PATIENT
  Age: 83 Year
  Sex: Female
  Weight: 44.45 kg

DRUGS (13)
  1. CELEBREX [Concomitant]
     Active Substance: CELECOXIB
  2. VITAMIN D [Concomitant]
     Active Substance: CHOLECALCIFEROL
  3. DAILY MULTI + IRON [Concomitant]
  4. MAG CITRATE [Concomitant]
  5. LEVOTHYROXIN [Concomitant]
     Active Substance: LEVOTHYROXINE
  6. METRONIDAZOLE. [Concomitant]
     Active Substance: METRONIDAZOLE
  7. FISH OIL [Concomitant]
     Active Substance: FISH OIL
  8. LOVASTATIN. [Concomitant]
     Active Substance: LOVASTATIN
  9. LEVOFLOXACIN 750 MG DR. REDDY^S LAB [Suspect]
     Active Substance: LEVOFLOXACIN
     Indication: INFECTION PROPHYLAXIS
     Route: 048
     Dates: start: 20150505, end: 20150509
  10. PREMARIN [Concomitant]
     Active Substance: ESTROGENS, CONJUGATED
  11. CLOBETASOL [Concomitant]
     Active Substance: CLOBETASOL
  12. CA + D [Concomitant]
  13. VITAMIN B12 [Concomitant]
     Active Substance: CYANOCOBALAMIN

REACTIONS (6)
  - Tendonitis [None]
  - Pain in extremity [None]
  - Foot fracture [None]
  - Gait disturbance [None]
  - Tendon rupture [None]
  - Avulsion fracture [None]

NARRATIVE: CASE EVENT DATE: 20150505
